FAERS Safety Report 4411525-7 (Version None)
Quarter: 2004Q2

REPORT INFORMATION
  Report Type: 
  Country: None (occurrence: None)
  Receive Date: 20040630
  Receipt Date: 20040312
  Transmission Date: 20050107
  Serious: No
  Sender: FDA-Public Use
  Company Number: 04P-163-0253257-00

PATIENT
  Age: 53 Year
  Sex: Female
  Weight: 64.4108 kg

DRUGS (6)
  1. HUMIRA [Suspect]
     Indication: RHEUMATOID ARTHRITIS
     Dosage: 40 MG, 1 IN 2 WK, SUBCUTANEOUS
     Route: 058
     Dates: start: 20040201
  2. AMLODIPINE BESYLATE [Concomitant]
  3. HYDROXYCHLOROQUINE PHOSPHATE [Concomitant]
  4. PREDNISONE [Concomitant]
  5. LEFLUNOMIDE [Concomitant]
  6. B-VOLTAREN [Concomitant]

REACTIONS (4)
  - BLOOD POTASSIUM DECREASED [None]
  - EPISTAXIS [None]
  - HYPERTENSION [None]
  - INJECTION SITE NODULE [None]
